FAERS Safety Report 20657265 (Version 1)
Quarter: 2022Q1

REPORT INFORMATION
  Report Type: Spontaneous
  Country: US (occurrence: US)
  Receive Date: 20220331
  Receipt Date: 20220331
  Transmission Date: 20220423
  Serious: No
  Sender: FDA-Public Use
  Company Number: US-BRISTOL-MYERS SQUIBB COMPANY-2022-012382

PATIENT
  Age: 76 Year
  Sex: Male
  Weight: 63.87 kg

DRUGS (1)
  1. POMALYST [Suspect]
     Active Substance: POMALIDOMIDE
     Indication: Plasma cell myeloma
     Dosage: 1 CAPSULE DAILY FOR 21 DAYS OF 28 DAYS CYCLE
     Route: 048
     Dates: start: 20200508

REACTIONS (3)
  - Muscle spasms [Unknown]
  - Paraesthesia [Unknown]
  - Prescribed underdose [Unknown]

NARRATIVE: CASE EVENT DATE: 20220216
